FAERS Safety Report 4346517-X (Version None)
Quarter: 2004Q2

REPORT INFORMATION
  Report Type: 
  Country: None (occurrence: None)
  Receive Date: 20040426
  Receipt Date: 20031106
  Transmission Date: 20050107
  Serious: Yes (Other)
  Sender: FDA-Public Use
  Company Number: US-BRISTOL-MYERS SQUIBB COMPANY-12429783

PATIENT
  Age: 63 Year
  Sex: Female
  Weight: 75 kg

DRUGS (6)
  1. CARBOPLATIN [Suspect]
     Indication: OVARIAN CANCER
     Route: 042
     Dates: start: 20031106, end: 20031106
  2. LISINOPRIL [Concomitant]
  3. LORAZEPAM [Concomitant]
  4. ANZEMET [Concomitant]
     Route: 042
  5. DECADRON [Concomitant]
     Route: 042
  6. EPOGEN [Concomitant]
     Route: 058

REACTIONS (2)
  - HYPERTENSION [None]
  - PRURITUS [None]
